FAERS Safety Report 14203777 (Version 1)
Quarter: 2017Q4

REPORT INFORMATION
  Report Type: Spontaneous
  Country: US (occurrence: None)
  Receive Date: 20171117
  Receipt Date: 20171117
  Transmission Date: 20180321
  Serious: No
  Sender: FDA-Public Use
  Company Number: None

PATIENT
  Sex: Female

DRUGS (1)
  1. ENBREL [Suspect]
     Active Substance: ETANERCEPT
     Dosage: 50 MG BIW FOR 3 MONTHS SQ
     Route: 058
     Dates: start: 20170918

REACTIONS (7)
  - Oropharyngeal pain [None]
  - Chest pain [None]
  - Productive cough [None]
  - Headache [None]
  - Sputum discoloured [None]
  - Wheezing [None]
  - Respiratory tract congestion [None]
